FAERS Safety Report 8275406-3 (Version None)
Quarter: 2012Q2

REPORT INFORMATION
  Report Type: 
  Country: None (occurrence: None)
  Receive Date: 20120411
  Receipt Date: 20120410
  Transmission Date: 20120825
  Serious: Yes (Hospitalization, Other)
  Sender: FDA-Public Use
  Company Number: LU-MERCK-1203BEL00008

PATIENT
  Age: 68 Year
  Sex: Female

DRUGS (5)
  1. IBUPROFEN [Concomitant]
     Indication: MYALGIA
     Route: 048
  2. VYTORIN [Suspect]
     Route: 048
     Dates: end: 20120309
  3. ESOMEPRAZOLE MAGNESIUM [Concomitant]
     Route: 048
  4. VASERETIC [Concomitant]
     Indication: HYPERTENSION
     Route: 048
  5. METFORMIN [Concomitant]
     Indication: DIABETES MELLITUS
     Route: 048

REACTIONS (3)
  - RHABDOMYOLYSIS [None]
  - PAIN IN EXTREMITY [None]
  - TRANSIENT ISCHAEMIC ATTACK [None]
